FAERS Safety Report 23319475 (Version 1)
Quarter: 2023Q4

REPORT INFORMATION
  Report Type: Spontaneous
  Country: CN (occurrence: None)
  Receive Date: 20231220
  Receipt Date: 20231220
  Transmission Date: 20240110
  Serious: Yes (Death)
  Sender: FDA-Public Use
  Company Number: CN-ROCHE-3475826

PATIENT

DRUGS (4)
  1. TRASTUZUMAB [Suspect]
     Active Substance: TRASTUZUMAB
     Indication: HER2 positive breast cancer
     Dosage: LOADING DOSE 4 MG/KG FOLLOWED BY 2 MG/KG, COMBINED WITH PACLITAXEL FOR 12 WEEKS
     Route: 065
  2. TRASTUZUMAB [Suspect]
     Active Substance: TRASTUZUMAB
     Dosage: FOR 40 WEEKS
     Route: 065
  3. TRASTUZUMAB [Suspect]
     Active Substance: TRASTUZUMAB
     Dosage: FOR 40 WEEKS
     Route: 065
  4. PACLITAXEL [Concomitant]
     Active Substance: PACLITAXEL
     Indication: HER2 positive breast cancer
     Dosage: COMBINED WITH TRASTUZUMAB FOR 12 WEEKS

REACTIONS (2)
  - Neoplasm recurrence [Unknown]
  - Death [Fatal]
